FAERS Safety Report 11274266 (Version 2)
Quarter: 2015Q3

REPORT INFORMATION
  Report Type: Spontaneous
  Country: IT (occurrence: IT)
  Receive Date: 20150715
  Receipt Date: 20150730
  Transmission Date: 20151125
  Serious: Yes (Hospitalization)
  Sender: FDA-Public Use
  Company Number: IT-ELI_LILLY_AND_COMPANY-IT201507001099

PATIENT
  Age: 80 Year
  Sex: Male

DRUGS (8)
  1. CYMBALTA [Suspect]
     Active Substance: DULOXETINE HYDROCHLORIDE
     Indication: DEPRESSION
     Dosage: 30 MG, QD
     Route: 048
     Dates: start: 20150401, end: 20150528
  2. PRITOR                             /01421801/ [Concomitant]
     Dosage: 80 MG, UNKNOWN
     Route: 065
  3. LANSOPRAZOLE. [Concomitant]
     Active Substance: LANSOPRAZOLE
     Dosage: 30 MG, UNKNOWN
     Route: 065
  4. PERIPLUM                           /00918401/ [Concomitant]
     Dosage: 30 MG, UNK
     Route: 065
  5. CARDIOASPIRIN [Concomitant]
     Active Substance: ASPIRIN
     Dosage: UNK, UNKNOWN
     Route: 065
  6. ONCO CARBIDE [Concomitant]
     Active Substance: HYDROXYUREA
     Dosage: 500 MG, BID
     Route: 065
     Dates: start: 20150526, end: 20150629
  7. ALLOPURINOL. [Concomitant]
     Active Substance: ALLOPURINOL
     Dosage: 300 MG, UNKNOWN
     Route: 065
  8. EUTIROX [Concomitant]
     Active Substance: LEVOTHYROXINE SODIUM
     Dosage: 100 MG, UNKNOWN
     Route: 065

REACTIONS (3)
  - Hypochloraemia [Recovering/Resolving]
  - Hyponatraemia [Recovering/Resolving]
  - Hypocalcaemia [Recovering/Resolving]

NARRATIVE: CASE EVENT DATE: 20150528
